FAERS Safety Report 7768254-1 (Version None)
Quarter: 2011Q3

REPORT INFORMATION
  Report Type: 
  Country: None (occurrence: None)
  Receive Date: 20110922
  Receipt Date: 20100106
  Transmission Date: 20111222
  Serious: No
  Sender: FDA-Public Use
  Company Number: US-ASTRAZENECA-2009SE12492

PATIENT
  Age: 13265 Day
  Sex: Female
  Weight: 72.6 kg

DRUGS (16)
  1. GEODON [Concomitant]
     Dosage: DOSE VARIED
     Dates: start: 20000101
  2. ABILIFY [Concomitant]
     Dates: start: 20020101, end: 20090101
  3. STELAZINE [Concomitant]
     Dates: start: 20000113
  4. LITHIUM CARBONATE [Concomitant]
     Dates: start: 20000113
  5. ZYPREXA [Concomitant]
     Dates: start: 19980101, end: 20050101
  6. RISPERDAL [Concomitant]
     Dosage: DOSE VARIED
     Dates: start: 19940101
  7. HALDOL [Concomitant]
     Dosage: DOSE VARIED
     Dates: start: 19990101, end: 20000101
  8. STELAZINE [Concomitant]
     Dates: start: 19870101, end: 20030101
  9. RESTORIL [Concomitant]
     Dosage: 30 MG QHS AND 15 MG PRN
     Dates: start: 20000113
  10. SEROQUEL [Suspect]
     Indication: DEPRESSION
     Dosage: 25 MG, 100 MG, 200 MG
     Route: 048
     Dates: start: 19990730, end: 20000110
  11. PRILOSEC [Concomitant]
     Dates: start: 20000113
  12. SEROQUEL [Suspect]
     Indication: ANXIETY
     Dosage: 25 MG, 100 MG, 200 MG
     Route: 048
     Dates: start: 19990730, end: 20000110
  13. SYMBYAX [Concomitant]
     Dates: start: 19980101, end: 20050101
  14. EFFEXOR XR [Concomitant]
     Dates: start: 20000113
  15. COGENTIN [Concomitant]
     Dosage: 1 MG QD, 1 MG QD PRN
     Dates: start: 20000113
  16. SEROQUEL [Suspect]
     Indication: SCHIZOPHRENIA
     Dosage: 25 MG, 100 MG, 200 MG
     Route: 048
     Dates: start: 19990730, end: 20000110

REACTIONS (2)
  - PAIN IN EXTREMITY [None]
  - TYPE 2 DIABETES MELLITUS [None]
